FAERS Safety Report 14316809 (Version 1)
Quarter: 2017Q4

REPORT INFORMATION
  Report Type: Spontaneous
  Country: AU (occurrence: AU)
  Receive Date: 20171222
  Receipt Date: 20171222
  Transmission Date: 20180321
  Serious: Yes (Other)
  Sender: FDA-Public Use
  Company Number: AU-ORION CORPORATION ORION PHARMA-ENT 2017-0184

PATIENT
  Age: 34 Year
  Sex: Male

DRUGS (4)
  1. L-DOPA+BENSERAZIDE [Concomitant]
     Indication: PARKINSON^S DISEASE
     Route: 065
  2. ENTACAPONE. [Suspect]
     Active Substance: ENTACAPONE
     Indication: PARKINSON^S DISEASE
     Route: 065
  3. TOLCAPONE. [Suspect]
     Active Substance: TOLCAPONE
     Indication: PARKINSON^S DISEASE
     Route: 065
  4. PERGOLIDE [Suspect]
     Active Substance: PERGOLIDE
     Indication: PARKINSON^S DISEASE
     Dosage: TOTAL TREATMENT LED: 1270 MG/DAY
     Route: 065

REACTIONS (2)
  - Jealous delusion [Recovered/Resolved]
  - Gambling disorder [Recovered/Resolved]
